FAERS Safety Report 16639472 (Version 1)
Quarter: 2019Q3

REPORT INFORMATION
  Report Type: Spontaneous
  Country: GB (occurrence: GB)
  Receive Date: 20190726
  Receipt Date: 20190726
  Transmission Date: 20191004
  Serious: Yes (Other)
  Sender: FDA-Public Use
  Company Number: PHHY2019GB171115

PATIENT
  Sex: Female

DRUGS (1)
  1. AZOPT [Suspect]
     Active Substance: BRINZOLAMIDE
     Indication: PRODUCT USED FOR UNKNOWN INDICATION
     Dosage: 3 GTT, BID
     Route: 047
     Dates: start: 20190719

REACTIONS (5)
  - Headache [Unknown]
  - Sleep disorder [Unknown]
  - Malaise [Unknown]
  - Cataract [Unknown]
  - Open angle glaucoma [Unknown]
